FAERS Safety Report 7029176-7 (Version None)
Quarter: 2010Q3

REPORT INFORMATION
  Report Type: 
  Country: None (occurrence: None)
  Receive Date: 20100930
  Receipt Date: 20100914
  Transmission Date: 20110219
  Serious: Yes (Other)
  Sender: FDA-Public Use
  Company Number: ACO_01700_2010

PATIENT
  Sex: Male
  Weight: 92.9874 kg

DRUGS (11)
  1. AMPYRA [Suspect]
     Indication: GAIT DISTURBANCE
     Dosage: (10 MG BID ORAL), (10 MG QD ORAL), (DF)
     Route: 048
     Dates: start: 20100312, end: 20100101
  2. AMPYRA [Suspect]
     Indication: GAIT DISTURBANCE
     Dosage: (10 MG BID ORAL), (10 MG QD ORAL), (DF)
     Route: 048
     Dates: start: 20100101, end: 20100805
  3. AMPYRA [Suspect]
     Indication: GAIT DISTURBANCE
     Dosage: (10 MG BID ORAL), (10 MG QD ORAL), (DF)
     Route: 048
     Dates: start: 20100830
  4. NEUTRONTIN [Concomitant]
  5. XANAX [Concomitant]
  6. AMBIBN [Concomitant]
  7. TYSABRI [Concomitant]
  8. PROVIGIL [Concomitant]
  9. VITAMIN D [Concomitant]
  10. NORTRIPTYLINE HCL [Concomitant]
  11. BACLOFEN [Concomitant]

REACTIONS (9)
  - BALANCE DISORDER [None]
  - CONVULSION [None]
  - DYSPNOEA [None]
  - ELECTROENCEPHALOGRAM ABNORMAL [None]
  - FEELING ABNORMAL [None]
  - HEART RATE DECREASED [None]
  - HYPERVENTILATION [None]
  - TREATMENT NONCOMPLIANCE [None]
  - UNRESPONSIVE TO STIMULI [None]
